FAERS Safety Report 18819834 (Version 1)
Quarter: 2021Q1

REPORT INFORMATION
  Report Type: Spontaneous
  Country: US (occurrence: US)
  Receive Date: 20210202
  Receipt Date: 20210202
  Transmission Date: 20210419
  Serious: No
  Sender: FDA-Public Use
  Company Number: US-GLAXOSMITHKLINE-USCH2021002132

PATIENT
  Age: 51 Year
  Sex: Male

DRUGS (1)
  1. VOLTAREN ARTHRITIS PAIN [Suspect]
     Active Substance: DICLOFENAC SODIUM
     Indication: PRODUCT USED FOR UNKNOWN INDICATION
     Dosage: UNK
     Dates: start: 20210123, end: 20210124

REACTIONS (3)
  - Burning sensation [Unknown]
  - Erythema [Recovering/Resolving]
  - Thermal burn [Unknown]

NARRATIVE: CASE EVENT DATE: 20210124
